FAERS Safety Report 7535180-2 (Version None)
Quarter: 2011Q2

REPORT INFORMATION
  Report Type: 
  Country: None (occurrence: None)
  Receive Date: 20110609
  Receipt Date: 20090312
  Transmission Date: 20111010
  Serious: Yes (Death, Hospitalization)
  Sender: FDA-Public Use
  Company Number: PHHY2009BR09287

PATIENT
  Age: 52 Year
  Sex: Male

DRUGS (3)
  1. AMLODIPINE [Concomitant]
     Indication: HYPERTENSION
     Dosage: 25 MG, QD
     Route: 048
  2. DEXAMETHASONE [Concomitant]
  3. FORMOTEROL FUMARATE [Suspect]
     Indication: DYSPNOEA

REACTIONS (5)
  - LUNG CANCER METASTATIC [None]
  - OEDEMA [None]
  - METASTASES TO OESOPHAGUS [None]
  - METASTASES TO CENTRAL NERVOUS SYSTEM [None]
  - APHONIA [None]
